FAERS Safety Report 5950356-3 (Version None)
Quarter: 2008Q4

REPORT INFORMATION
  Report Type: 
  Country: None (occurrence: None)
  Receive Date: 20081112
  Receipt Date: 20081105
  Transmission Date: 20090506
  Serious: Yes (Hospitalization, Other)
  Sender: FDA-Public Use
  Company Number: PHBS2008CN06255

PATIENT
  Age: 16 Year
  Sex: Female

DRUGS (2)
  1. CYCLOSPORINE [Suspect]
     Indication: ANAEMIA HAEMOLYTIC AUTOIMMUNE
     Dosage: 150 MG/DAY
     Route: 048
     Dates: start: 20080704, end: 20080701
  2. METHYLPREDNISOLONE 16MG TAB [Concomitant]
     Indication: ANAEMIA HAEMOLYTIC AUTOIMMUNE
     Dosage: 32 MG/DAY
     Route: 065

REACTIONS (12)
  - COMA [None]
  - CONVULSION [None]
  - CUSHINGOID [None]
  - FAECAL INCONTINENCE [None]
  - FATIGUE [None]
  - FOAMING AT MOUTH [None]
  - HAEMOGLOBIN DECREASED [None]
  - MUSCLE SPASMS [None]
  - SCLERAL DISCOLOURATION [None]
  - STATUS EPILEPTICUS [None]
  - TRISMUS [None]
  - URINARY INCONTINENCE [None]
